FAERS Safety Report 14541146 (Version 1)
Quarter: 2018Q1

REPORT INFORMATION
  Report Type: Spontaneous
  Country: FR (occurrence: FR)
  Receive Date: 20180216
  Receipt Date: 20180216
  Transmission Date: 20180509
  Serious: Yes (Other)
  Sender: FDA-Public Use
  Company Number: FR-OTSUKA-DJ20110771

PATIENT

DRUGS (2)
  1. ABILIFY [Suspect]
     Active Substance: ARIPIPRAZOLE
     Route: 065
     Dates: end: 2011
  2. MARSILID PHOSPHATE [Suspect]
     Active Substance: IPRONIAZID PHOSPHATE
     Route: 065
     Dates: end: 2011

REACTIONS (1)
  - Hepatitis cholestatic [Unknown]
